FAERS Safety Report 7113267-6 (Version None)
Quarter: 2010Q4

REPORT INFORMATION
  Report Type: 
  Country: None (occurrence: None)
  Receive Date: 20101119
  Receipt Date: 20100518
  Transmission Date: 20110411
  Serious: No
  Sender: FDA-Public Use
  Company Number: A0860229A

PATIENT
  Age: 50 Year
  Sex: Female

DRUGS (2)
  1. WELLBUTRIN SR [Suspect]
     Indication: MULTIPLE SCLEROSIS
     Dosage: 150MG PER DAY
     Route: 048
  2. AMBIEN [Concomitant]

REACTIONS (1)
  - DRUG INEFFECTIVE [None]
